FAERS Safety Report 10229796 (Version 1)
Quarter: 2014Q2

REPORT INFORMATION
  Report Type: Report from Study
  Country: US (occurrence: US)
  Receive Date: 20140611
  Receipt Date: 20140611
  Transmission Date: 20141212
  Serious: Yes (Other)
  Sender: FDA-Public Use
  Company Number: PHEH2014US011672

PATIENT
  Sex: Female

DRUGS (1)
  1. TOBI PODHALER [Suspect]
     Dosage: 112 MG, TWICE A DAY
     Route: 055

REACTIONS (4)
  - Hypersensitivity [Unknown]
  - Dyspnoea [Unknown]
  - Chest discomfort [Unknown]
  - Bronchospasm [Unknown]
